FAERS Safety Report 18426534 (Version 2)
Quarter: 2020Q4

REPORT INFORMATION
  Report Type: Spontaneous
  Country: US (occurrence: US)
  Receive Date: 20201026
  Receipt Date: 20201230
  Transmission Date: 20210114
  Serious: Yes (Other)
  Sender: FDA-Public Use
  Company Number: US-PFIZER INC-2020405633

PATIENT
  Age: 58 Year
  Sex: Female
  Weight: 56.7 kg

DRUGS (6)
  1. GENOTROPIN [Suspect]
     Active Substance: SOMATROPIN
     Indication: ADDISON^S DISEASE
     Dosage: UNK
     Dates: start: 2010
  2. GENOTROPIN [Suspect]
     Active Substance: SOMATROPIN
     Dosage: UNK
     Dates: start: 20201019
  3. FLECAINIDE [Concomitant]
     Active Substance: FLECAINIDE
     Indication: ATRIAL FIBRILLATION
     Dosage: UNK
  4. CORTEF [Concomitant]
     Active Substance: HYDROCORTISONE
     Dosage: UNK
  5. DELZICOL [Concomitant]
     Active Substance: MESALAMINE
     Dosage: UNK
  6. NATURE-THROID [Concomitant]
     Active Substance: THYROID, PORCINE
     Dosage: UNK

REACTIONS (3)
  - Off label use [Unknown]
  - Expired device used [Unknown]
  - Atrial fibrillation [Unknown]

NARRATIVE: CASE EVENT DATE: 2010
